FAERS Safety Report 10485998 (Version 1)
Quarter: 2014Q3

REPORT INFORMATION
  Report Type: Spontaneous
  Country: US (occurrence: None)
  Receive Date: 20140929
  Receipt Date: 20140929
  Transmission Date: 20150326
  Serious: Yes (Hospitalization)
  Sender: FDA-Public Use
  Company Number: AXC-2014-000518

PATIENT
  Age: 46 Year
  Sex: Female

DRUGS (1)
  1. CANASA [Suspect]
     Active Substance: MESALAMINE
     Indication: COLITIS ULCERATIVE
     Route: 054
     Dates: start: 201307

REACTIONS (3)
  - Rectal haemorrhage [None]
  - Mental disorder [None]
  - Withdrawal syndrome [None]

NARRATIVE: CASE EVENT DATE: 201312
